FAERS Safety Report 9592226 (Version 2)
Quarter: 2013Q4

REPORT INFORMATION
  Report Type: Spontaneous
  Country: FR (occurrence: FR)
  Receive Date: 20131004
  Receipt Date: 20131004
  Transmission Date: 20140711
  Serious: Yes (Hospitalization)
  Sender: FDA-Public Use
  Company Number: FR-ASTRAZENECA-2012SE65305

PATIENT
  Age: 44 Year
  Sex: Female

DRUGS (4)
  1. XEROQUEL [Suspect]
     Indication: BIPOLAR DISORDER
     Route: 048
     Dates: start: 2011, end: 201309
  2. LITHIUM [Concomitant]
     Indication: BIPOLAR DISORDER
  3. LITHIUM [Concomitant]
     Indication: BIPOLAR DISORDER
  4. SERESTA [Concomitant]

REACTIONS (3)
  - Mania [Recovered/Resolved]
  - Loss of libido [Not Recovered/Not Resolved]
  - Hypomania [Recovered/Resolved]
